FAERS Safety Report 5870834-5 (Version None)
Quarter: 2008Q3

REPORT INFORMATION
  Report Type: 
  Country: None (occurrence: None)
  Receive Date: 20080904
  Receipt Date: 20080826
  Transmission Date: 20090109
  Serious: Yes (Hospitalization)
  Sender: FDA-Public Use
  Company Number: US-ABBOTT-08P-163-0433471-00

PATIENT
  Sex: Female
  Weight: 147.3 kg

DRUGS (5)
  1. HUMIRA [Suspect]
     Indication: RHEUMATOID ARTHRITIS
     Route: 058
     Dates: start: 20031201, end: 20051101
  2. HUMIRA [Suspect]
     Route: 058
     Dates: start: 20060101, end: 20061201
  3. HUMIRA [Suspect]
     Route: 058
     Dates: start: 20061201, end: 20071201
  4. HUMIRA [Suspect]
     Route: 058
     Dates: start: 20080101
  5. METHOTREXATE [Concomitant]
     Indication: RHEUMATOID ARTHRITIS
     Dates: end: 20070701

REACTIONS (3)
  - BRONCHITIS [None]
  - DRUG INEFFECTIVE [None]
  - KNEE ARTHROPLASTY [None]
